FAERS Safety Report 21027621 (Version 2)
Quarter: 2022Q3

REPORT INFORMATION
  Report Type: Spontaneous
  Country: US (occurrence: US)
  Receive Date: 20220630
  Receipt Date: 20220721
  Transmission Date: 20221026
  Serious: Yes (Death, Other)
  Sender: FDA-Public Use
  Company Number: US-Blueprint Medicines Corporation-SP-US-2022-002028

PATIENT
  Age: 60 Year
  Sex: Male

DRUGS (2)
  1. AYVAKIT [Suspect]
     Active Substance: AVAPRITINIB
     Indication: Mastocytic leukaemia
     Dosage: 50MG ONCE DAILY FOR 2 WEEKS, THEN 100MG ONCE DAILY FOR 2 WEEKS
     Route: 048
     Dates: start: 20220519, end: 20220620
  2. AYVAKIT [Suspect]
     Active Substance: AVAPRITINIB
     Dosage: 50MG ONCE DAILY FOR 2 WEEKS, THEN 100MG ONCE DAILY FOR 2 WEEKS
     Route: 048
     Dates: start: 20220519, end: 20220620

REACTIONS (2)
  - Death [Fatal]
  - Full blood count abnormal [Unknown]

NARRATIVE: CASE EVENT DATE: 20220620
